FAERS Safety Report 5102437-4 (Version None)
Quarter: 2006Q3

REPORT INFORMATION
  Report Type: 
  Country: None (occurrence: None)
  Receive Date: 20060912
  Receipt Date: 20060830
  Transmission Date: 20061208
  Serious: Yes (Other)
  Sender: FDA-Public Use
  Company Number: AU-GLAXOSMITHKLINE-B0436382A

PATIENT
  Age: 70 Year
  Sex: Female

DRUGS (3)
  1. ACETAMINOPHEN [Suspect]
     Indication: ARTHRITIS
     Dosage: 2CAPL TWICE PER DAY
     Route: 048
     Dates: start: 20060301
  2. NEXIUM [Concomitant]
     Indication: ILL-DEFINED DISORDER
     Dosage: 1UNIT PER DAY
  3. ADALAT [Concomitant]
     Indication: BLOOD PRESSURE
     Dosage: 1UNIT PER DAY
     Route: 048

REACTIONS (1)
  - HEPATIC ENZYME INCREASED [None]
